FAERS Safety Report 5808770-2 (Version None)
Quarter: 2008Q3

REPORT INFORMATION
  Report Type: 
  Country: None (occurrence: None)
  Receive Date: 20080710
  Receipt Date: 20080710
  Transmission Date: 20090109
  Serious: Yes (Other)
  Sender: FDA-Public Use
  Company Number: None

PATIENT
  Age: 43 Year
  Sex: Male
  Weight: 102.0593 kg

DRUGS (2)
  1. ISOMETHEPTENE MUCATE DICHLORALPHENAZONE ACETA [Suspect]
     Indication: MIGRAINE
     Dosage: 2 CAPSULES ONSET PO; 1 CAPSULE/2008
     Route: 048
     Dates: start: 20080616, end: 20080706
  2. 65/100/325 EXCELLIUM PHARMACEUTICAL, INC. [Suspect]
     Dosage: 1 CAPSULE HOURLY X 4 PO
     Route: 048

REACTIONS (2)
  - DRUG INEFFECTIVE [None]
  - PHARMACEUTICAL PRODUCT COMPLAINT [None]
